FAERS Safety Report 8548402-6 (Version None)
Quarter: 2012Q3

REPORT INFORMATION
  Report Type: 
  Country: None (occurrence: None)
  Receive Date: 20120717
  Receipt Date: 20120703
  Transmission Date: 20120928
  Serious: Yes (Hospitalization, Other)
  Sender: FDA-Public Use
  Company Number: 2012-002344

PATIENT
  Age: 74 Year
  Sex: Female

DRUGS (5)
  1. LYRICA [Concomitant]
  2. LOXONIN (LOXOPROFEN SODIUM) [Concomitant]
  3. STOMATIDIN (HEXETIDINE) [Concomitant]
  4. RISEDRONATE SODIUM [Suspect]
     Indication: OSTEOPOROSIS
     Dosage: 17.5 MG WEEKLY, ORAL
     Route: 048
     Dates: start: 20090601, end: 20110113
  5. ALL OTHER THERAPEUTIC PRODUCTS [Concomitant]

REACTIONS (4)
  - FALL [None]
  - BONE PAIN [None]
  - ATYPICAL FEMUR FRACTURE [None]
  - FRACTURE DELAYED UNION [None]
